FAERS Safety Report 6791050-9 (Version None)
Quarter: 2010Q2

REPORT INFORMATION
  Report Type: 
  Country: None (occurrence: None)
  Receive Date: 20100623
  Receipt Date: 20100623
  Transmission Date: 20101027
  Serious: Yes (Hospitalization)
  Sender: FDA-Public Use
  Company Number: None

PATIENT
  Sex: Female
  Weight: 67.4 kg

DRUGS (2)
  1. CISPLATIN [Suspect]
     Dosage: 87 MG
     Dates: end: 20100525
  2. TAXOL [Suspect]
     Dosage: 303 MG
     Dates: end: 20100524

REACTIONS (1)
  - HOSPITALISATION [None]
